FAERS Safety Report 24654768 (Version 1)
Quarter: 2024Q4

REPORT INFORMATION
  Report Type: Report from Study
  Country: AU (occurrence: AU)
  Receive Date: 20241122
  Receipt Date: 20241122
  Transmission Date: 20250114
  Serious: Yes (Hospitalization)
  Sender: PHARMING GROUP
  Company Number: AU-PHARMING-PHAAU2024001088

PATIENT

DRUGS (1)
  1. LENIOLISIB [Suspect]
     Active Substance: LENIOLISIB
     Indication: Activated PI3 kinase delta syndrome
     Dosage: UNK

REACTIONS (2)
  - Infection [Unknown]
  - Product dose omission issue [Unknown]
